FAERS Safety Report 4871943-X (Version None)
Quarter: 2006Q1

REPORT INFORMATION
  Report Type: 
  Country: None (occurrence: None)
  Receive Date: 20060104
  Receipt Date: 20050314
  Transmission Date: 20060701
  Serious: Yes (Other)
  Sender: FDA-Public Use
  Company Number: JP-ROCHE-399263

PATIENT
  Age: 35 Year
  Sex: Male

DRUGS (3)
  1. TAMIFLU [Suspect]
     Dosage: DRUG NAME REPORTED AS TAMIFLU CAPSULE
     Route: 048
     Dates: start: 20050308, end: 20050308
  2. TAMIFLU [Suspect]
     Route: 048
     Dates: start: 20050309, end: 20050310
  3. TAMIFLU [Suspect]
     Route: 048
     Dates: start: 20050311, end: 20050311

REACTIONS (6)
  - ALANINE AMINOTRANSFERASE INCREASED [None]
  - ASPARTATE AMINOTRANSFERASE INCREASED [None]
  - BLOOD BILIRUBIN INCREASED [None]
  - C-REACTIVE PROTEIN INCREASED [None]
  - DRUG ERUPTION [None]
  - LIVER DISORDER [None]
